FAERS Safety Report 18269096 (Version 1)
Quarter: 2020Q3

REPORT INFORMATION
  Report Type: Spontaneous
  Country: BR (occurrence: BR)
  Receive Date: 20200915
  Receipt Date: 20200915
  Transmission Date: 20201103
  Serious: Yes (Other)
  Sender: FDA-Public Use
  Company Number: BR-JNJFOC-20200903875

PATIENT
  Age: 8 Year
  Sex: Female
  Weight: 33 kg

DRUGS (1)
  1. CONCERTA [Suspect]
     Active Substance: METHYLPHENIDATE HYDROCHLORIDE
     Indication: ATTENTION DEFICIT HYPERACTIVITY DISORDER
     Dosage: TOOK 8 TABLETS UNTIL SUSPENSION
     Route: 048
     Dates: start: 202007

REACTIONS (7)
  - Headache [Unknown]
  - Bruxism [Unknown]
  - Asthenia [Unknown]
  - Malaise [Unknown]
  - Retinal injury [Unknown]
  - Rhinorrhoea [Unknown]
  - Decreased appetite [Unknown]
